FAERS Safety Report 4417189-0 (Version None)
Quarter: 2004Q3

REPORT INFORMATION
  Report Type: 
  Country: None (occurrence: None)
  Receive Date: 20040802
  Receipt Date: 20040720
  Transmission Date: 20050211
  Serious: Yes (Death)
  Sender: FDA-Public Use
  Company Number: USA-2004-0014507

PATIENT
  Age: 52 Year
  Sex: Female
  Weight: 92.5 kg

DRUGS (1)
  1. MS CONTIN [Suspect]
     Indication: PAIN
     Dosage: 100 MG, BID, UNKNOWN

REACTIONS (1)
  - MYOCARDIAL INFARCTION [None]
